FAERS Safety Report 7802827-2 (Version None)
Quarter: 2011Q4

REPORT INFORMATION
  Report Type: 
  Country: None (occurrence: None)
  Receive Date: 20111007
  Receipt Date: 20110929
  Transmission Date: 20120403
  Serious: Yes (Disabling, Other)
  Sender: FDA-Public Use
  Company Number: US-MERCK-0811USA04250

PATIENT
  Age: 57 Year
  Sex: Female
  Weight: 59 kg

DRUGS (2)
  1. THYROID [Concomitant]
     Route: 048
     Dates: start: 19900105
  2. FOSAMAX [Suspect]
     Indication: OSTEOPENIA
     Route: 048
     Dates: start: 20040201, end: 20070801

REACTIONS (20)
  - OSTEONECROSIS OF JAW [None]
  - SUICIDAL IDEATION [None]
  - ABSCESS [None]
  - CONCUSSION [None]
  - NEPHROLITHIASIS [None]
  - INSOMNIA [None]
  - CALCULUS URETERIC [None]
  - INFECTION [None]
  - JAW DISORDER [None]
  - ADVERSE DRUG REACTION [None]
  - FACE INJURY [None]
  - DEPRESSION [None]
  - OSTEONECROSIS [None]
  - SYNCOPE [None]
  - ANXIETY [None]
  - LOSS OF CONSCIOUSNESS [None]
  - HAEMATURIA [None]
  - HYDRONEPHROSIS [None]
  - FLANK PAIN [None]
  - GINGIVAL DISORDER [None]
